FAERS Safety Report 24896936 (Version 1)
Quarter: 2025Q1

REPORT INFORMATION
  Report Type: Spontaneous
  Country: US (occurrence: US)
  Receive Date: 20250128
  Receipt Date: 20250128
  Transmission Date: 20250409
  Serious: Yes (Other)
  Sender: AMGEN
  Company Number: US-AMGEN-USASP2025015964

PATIENT

DRUGS (2)
  1. RITUXIMAB [Suspect]
     Active Substance: RITUXIMAB
     Indication: Immunosuppressant drug therapy
     Route: 065
  2. HEPLISAV B [Concomitant]
     Indication: Hepatitis B

REACTIONS (4)
  - Transplant rejection [Unknown]
  - Cytomegalovirus viraemia [Unknown]
  - Dialysis [Unknown]
  - Off label use [Unknown]
